FAERS Safety Report 15884867 (Version 1)
Quarter: 2019Q1

REPORT INFORMATION
  Report Type: Spontaneous
  Country: US (occurrence: US)
  Receive Date: 20190107
  Receipt Date: 20190107
  Transmission Date: 20190417
  Serious: Yes (Hospitalization)
  Sender: FDA-Public Use
  Company Number: None

PATIENT
  Age: 77 Year
  Sex: Female
  Weight: 76 kg

DRUGS (1)
  1. TEMOZOLOMIDE. [Suspect]
     Active Substance: TEMOZOLOMIDE
     Dates: end: 20180611

REACTIONS (7)
  - Aphasia [None]
  - Gait disturbance [None]
  - Exercise tolerance decreased [None]
  - Haemorrhoids [None]
  - Asthenia [None]
  - Oedema [None]
  - Fall [None]

NARRATIVE: CASE EVENT DATE: 20180622
